FAERS Safety Report 20335979 (Version 1)
Quarter: 2022Q1

REPORT INFORMATION
  Report Type: Spontaneous
  Country: IR (occurrence: IR)
  Receive Date: 20220114
  Receipt Date: 20220114
  Transmission Date: 20220424
  Serious: Yes (Other)
  Sender: FDA-Public Use
  Company Number: IR-BAYER-2022A005096

PATIENT
  Age: 34 Year
  Sex: Female

DRUGS (2)
  1. REGORAFENIB [Suspect]
     Active Substance: REGORAFENIB
     Indication: Colorectal cancer metastatic
     Dosage: 160 MG, QD
     Dates: start: 201801
  2. PEMBROLIZUMAB [Concomitant]
     Active Substance: PEMBROLIZUMAB
     Dosage: 200 MG, Q3WK

REACTIONS (4)
  - Lymphadenopathy [None]
  - Gastrointestinal disorder [None]
  - Cough [Recovered/Resolved]
  - Dyspnoea [Recovered/Resolved]
